FAERS Safety Report 9272993 (Version 1)
Quarter: 2013Q2

REPORT INFORMATION
  Report Type: Spontaneous
  Country: US (occurrence: US)
  Receive Date: 20130506
  Receipt Date: 20130506
  Transmission Date: 20140414
  Serious: Yes (Other)
  Sender: FDA-Public Use
  Company Number: US-PFIZER INC-2013138774

PATIENT
  Age: 51 Year
  Sex: Male
  Weight: 93 kg

DRUGS (3)
  1. XANAX [Suspect]
     Indication: ANXIETY
     Dosage: 0.5 MG, 2X/DAY
     Route: 048
     Dates: start: 2007
  2. SPIRIVA [Concomitant]
     Indication: EMPHYSEMA
     Dosage: UNK
  3. ALBUTEROL [Concomitant]
     Indication: EMPHYSEMA
     Dosage: UNK

REACTIONS (2)
  - Cervical vertebral fracture [Recovered/Resolved]
  - Memory impairment [Recovered/Resolved]
